FAERS Safety Report 8824930 (Version 1)
Quarter: 2012Q4

REPORT INFORMATION
  Report Type: 
  Country: CN (occurrence: CN)
  Receive Date: 20121004
  Receipt Date: 20121004
  Transmission Date: 20130627
  Serious: Yes (Other)
  Sender: FDA-Public Use
  Company Number: CN-JNJFOC-20120912793

PATIENT
  Sex: Female

DRUGS (1)
  1. EXTRA STRENGTH TYLENOL [Suspect]
     Indication: PYREXIA
     Dosage: 2 tablets, 3 times a day
     Route: 048
     Dates: start: 20090801, end: 20090811

REACTIONS (2)
  - Liver function test abnormal [Recovering/Resolving]
  - Drug-induced liver injury [None]
